FAERS Safety Report 18656802 (Version 1)
Quarter: 2020Q4

REPORT INFORMATION
  Report Type: Spontaneous
  Country: US (occurrence: US)
  Receive Date: 20201223
  Receipt Date: 20201223
  Transmission Date: 20210114
  Serious: No
  Sender: FDA-Public Use
  Company Number: US-ABBVIE-20K-163-3395260-00

PATIENT
  Age: 69 Year
  Sex: Male

DRUGS (2)
  1. TAMSULOSIN [Concomitant]
     Active Substance: TAMSULOSIN
     Indication: PROSTATIC DISORDER
  2. LUPRON DEPOT [Suspect]
     Active Substance: LEUPROLIDE ACETATE
     Indication: PROSTATE CANCER STAGE IV
     Dosage: START DATE-  GREATER THAN TWO YEARS
     Route: 030
     Dates: end: 20200312

REACTIONS (9)
  - Product solubility abnormal [Unknown]
  - Syringe issue [Unknown]
  - Tumour marker increased [Unknown]
  - Injection site erythema [Unknown]
  - Injection site scab [Unknown]
  - Injection site hypersensitivity [Unknown]
  - Incorrect dose administered [Unknown]
  - Injection site abscess [Recovering/Resolving]
  - Device issue [Unknown]

NARRATIVE: CASE EVENT DATE: 202003
